FAERS Safety Report 5595636-9 (Version None)
Quarter: 2008Q1

REPORT INFORMATION
  Report Type: 
  Country: None (occurrence: None)
  Receive Date: 20080118
  Receipt Date: 20080108
  Transmission Date: 20080703
  Serious: Yes (Hospitalization)
  Sender: FDA-Public Use
  Company Number: FR-AMGEN-US260464

PATIENT
  Sex: Female

DRUGS (6)
  1. ENBREL [Suspect]
     Indication: RHEUMATOID ARTHRITIS
     Dosage: UNKNOWN
     Route: 058
     Dates: start: 20070601, end: 20070701
  2. HUMIRA [Suspect]
     Indication: RHEUMATOID ARTHRITIS
     Dosage: UNKNOWN
     Dates: start: 20060601, end: 20070501
  3. NOVATREX [Suspect]
     Route: 048
     Dates: end: 20070701
  4. SULFARLEM [Concomitant]
     Dosage: UNKNOWN
     Dates: start: 20070101
  5. CORTANCYL [Concomitant]
     Route: 048
     Dates: start: 20070701
  6. PLAQUENIL [Concomitant]
     Dosage: UNKNOWN
     Dates: start: 20070501

REACTIONS (12)
  - ANTINUCLEAR ANTIBODY POSITIVE [None]
  - ARTHRALGIA [None]
  - DERMOGRAPHISM [None]
  - DRY MOUTH [None]
  - HYPERGAMMAGLOBULINAEMIA [None]
  - IMMUNOLOGY TEST ABNORMAL [None]
  - INJECTION SITE HYPERSENSITIVITY [None]
  - LIVEDO RETICULARIS [None]
  - RASH PAPULAR [None]
  - RASH PRURITIC [None]
  - THROMBOANGIITIS OBLITERANS [None]
  - TOXIC SKIN ERUPTION [None]
